FAERS Safety Report 4597486-9 (Version None)
Quarter: 2005Q1

REPORT INFORMATION
  Report Type: 
  Country: None (occurrence: None)
  Receive Date: 20050303
  Receipt Date: 20050126
  Transmission Date: 20050727
  Serious: Yes (Other)
  Sender: FDA-Public Use
  Company Number: JP-ROCHE-394489

PATIENT
  Age: 20 Year
  Sex: Female

DRUGS (5)
  1. CELLCEPT [Suspect]
     Route: 048
     Dates: start: 20041020, end: 20041026
  2. CYCLOSPORINE [Suspect]
     Route: 048
     Dates: start: 20041020
  3. CYCLOSPORINE [Suspect]
     Dosage: REDUCED DOSE
     Route: 048
  4. PREDNISOLONE [Suspect]
     Route: 048
     Dates: start: 20041020
  5. INSULIN [Concomitant]
     Dates: start: 20041015

REACTIONS (9)
  - GLUCOSE TOLERANCE IMPAIRED [None]
  - HAEMODIALYSIS [None]
  - HEPATIC FUNCTION ABNORMAL [None]
  - OLIGURIA [None]
  - POST PROCEDURAL COMPLICATION [None]
  - PYREXIA [None]
  - RENAL INJURY [None]
  - SEPSIS [None]
  - URINARY TRACT INFECTION [None]
